FAERS Safety Report 11731540 (Version 1)
Quarter: 2015Q4

REPORT INFORMATION
  Report Type: Spontaneous
  Country: US (occurrence: US)
  Receive Date: 20151110
  Receipt Date: 20151110
  Transmission Date: 20160304
  Serious: No
  Sender: FDA-Public Use
  Company Number: US-ELI_LILLY_AND_COMPANY-US201203004707

PATIENT
  Sex: Female

DRUGS (3)
  1. PREDNISONE. [Concomitant]
     Active Substance: PREDNISONE
     Dosage: 12.5 DF, UNK
  2. FORTEO [Suspect]
     Active Substance: TERIPARATIDE
     Indication: OSTEOPOROSIS
     Dosage: 20 UG, QD
     Dates: start: 20110916
  3. PREDNISONE. [Concomitant]
     Active Substance: PREDNISONE
     Dosage: 7 DF, UNK

REACTIONS (4)
  - Pain in extremity [Unknown]
  - Hypoaesthesia [Unknown]
  - Arthritis [Unknown]
  - Muscular weakness [Unknown]
